FAERS Safety Report 6883597-1 (Version None)
Quarter: 2010Q3

REPORT INFORMATION
  Report Type: 
  Country: None (occurrence: None)
  Receive Date: 20100729
  Receipt Date: 20100728
  Transmission Date: 20110219
  Serious: Yes (Other)
  Sender: FDA-Public Use
  Company Number: DE-ROXANE LABORATORIES, INC.-2010-RO-00933RO

PATIENT
  Age: 21 Year
  Sex: Male
  Weight: 64 kg

DRUGS (11)
  1. AMLODIPINE [Suspect]
     Indication: HYPERTENSION
     Dates: start: 20020101
  2. RAMIPRIL [Suspect]
     Indication: HYPERTENSION
     Dates: start: 20020101
  3. ATENOLOL [Suspect]
     Indication: HYPERTENSION
     Dates: start: 20020101
  4. THIAZIDE [Suspect]
     Indication: HYPERTENSION
     Dates: start: 20020101
  5. MAGNESIUM [Suspect]
     Dates: start: 20030101
  6. AT10 [Suspect]
     Indication: BLOOD PARATHYROID HORMONE INCREASED
     Dosage: 0.7 MG
     Dates: start: 20040801, end: 20050101
  7. AT10 [Suspect]
     Dates: start: 20070301
  8. AT10 [Suspect]
     Dosage: 0.5 MG
     Dates: start: 20071201
  9. CINACALCET HYDROCHLORIDE [Suspect]
     Indication: PSEUDOHYPOPARATHYROIDISM
     Dosage: 30 MG
     Dates: start: 20050101, end: 20050101
  10. CINACALCET HYDROCHLORIDE [Suspect]
     Dates: start: 20070301
  11. CINACALCET HYDROCHLORIDE [Suspect]
     Dosage: 30 MG
     Dates: start: 20071201

REACTIONS (3)
  - HYPERCALCIURIA [None]
  - HYPERPHOSPHATAEMIA [None]
  - NEPHROCALCINOSIS [None]
